FAERS Safety Report 10687270 (Version 1)
Quarter: 2015Q1

REPORT INFORMATION
  Report Type: Spontaneous
  Country: US (occurrence: US)
  Receive Date: 20150102
  Receipt Date: 20150102
  Transmission Date: 20150720
  Serious: Yes (Hospitalization)
  Sender: FDA-Public Use
  Company Number: US-BAYER-2014-191314

PATIENT
  Age: 80 Year
  Sex: Female
  Weight: 141 kg

DRUGS (5)
  1. SULFAMETHOXAZOLE AND TRIMETHOPRIM DOUBLE STRENGTH [Suspect]
     Active Substance: SULFAMETHOXAZOLE\TRIMETHOPRIM
  2. TREPROSTINIL SODIUM [Suspect]
     Active Substance: TREPROSTINIL SODIUM
     Indication: PULMONARY ARTERIAL HYPERTENSION
     Dosage: 1.75 MG, BID
     Route: 048
     Dates: start: 20140821
  3. REVATIO [Concomitant]
     Active Substance: SILDENAFIL CITRATE
  4. CEFRADINE [Suspect]
     Active Substance: CEPHRADINE
  5. CIPRO [Suspect]
     Active Substance: CIPROFLOXACIN HYDROCHLORIDE

REACTIONS (8)
  - Eyelid oedema [Unknown]
  - Hypersensitivity [Unknown]
  - Headache [Unknown]
  - Limb injury [Unknown]
  - Pharyngeal oedema [Unknown]
  - Cellulitis [Unknown]
  - Condition aggravated [Unknown]
  - Oedema [Unknown]

NARRATIVE: CASE EVENT DATE: 2014
